FAERS Safety Report 10973764 (Version 1)
Quarter: 2015Q1

REPORT INFORMATION
  Report Type: Spontaneous
  Country: US (occurrence: None)
  Receive Date: 20150331
  Receipt Date: 20150331
  Transmission Date: 20150721
  Serious: Yes (Other)
  Sender: FDA-Public Use
  Company Number: None

PATIENT
  Age: 90 Year
  Sex: Male
  Weight: 68.04 kg

DRUGS (4)
  1. ESCITALOPRAM 10MG CAMBER [Suspect]
     Active Substance: ESCITALOPRAM OXALATE
     Indication: DEATH OF RELATIVE
     Dosage: 1 TAB
     Route: 048
     Dates: start: 20150118, end: 20150315
  2. LIPITOR [Concomitant]
     Active Substance: ATORVASTATIN CALCIUM
  3. PROSTATE DRUG [Concomitant]
  4. NEXIUM [Concomitant]
     Active Substance: ESOMEPRAZOLE MAGNESIUM

REACTIONS (5)
  - Abasia [None]
  - Depression [None]
  - Balance disorder [None]
  - Hallucinations, mixed [None]
  - Dissociation [None]

NARRATIVE: CASE EVENT DATE: 20150315
